FAERS Safety Report 8667486 (Version 3)
Quarter: 2012Q4

REPORT INFORMATION
  Report Type: 
  Country: US (occurrence: US)
  Receive Date: 20120717
  Receipt Date: 20120831
  Transmission Date: 20130627
  Serious: Yes (Death, Hospitalization, Other)
  Sender: FDA-Public Use
  Company Number: US-009507513-1207USA001362

PATIENT
  Age: 58 Year
  Sex: Male
  Weight: 71 kg

DRUGS (4)
  1. MK-2206 [Suspect]
     Indication: NON-SMALL CELL LUNG CANCER
     Dosage: 45 mg, qod
     Route: 048
     Dates: start: 20120217
  2. MK-2206 [Suspect]
     Dosage: 45 mg, qod
     Route: 048
     Dates: start: 20120608, end: 20120630
  3. ERLOTINIB [Suspect]
     Indication: NON-SMALL CELL LUNG CANCER
     Dosage: 150 mg, qd
     Route: 048
     Dates: start: 20120217
  4. ERLOTINIB [Suspect]
     Dosage: 150 mg, qd
     Route: 048
     Dates: start: 20120608, end: 20120630

REACTIONS (3)
  - Respiratory failure [Fatal]
  - Dyspnoea [Unknown]
  - Hypoxia [Unknown]
